FAERS Safety Report 6106838-7 (Version None)
Quarter: 2009Q1

REPORT INFORMATION
  Report Type: 
  Country: None (occurrence: None)
  Receive Date: 20090303
  Receipt Date: 20090224
  Transmission Date: 20090719
  Serious: Yes (Other)
  Sender: FDA-Public Use
  Company Number: 2009AL001093

PATIENT
  Age: 49 Year
  Sex: Female

DRUGS (4)
  1. TRAMADOL HYDROCHLORIDE [Suspect]
     Indication: BACK PAIN
     Dosage: PO
     Route: 048
     Dates: start: 20081201, end: 20081201
  2. QVAR 40 [Concomitant]
  3. SALBUTAMOL [Concomitant]
  4. TRIMETHOPRIM [Concomitant]

REACTIONS (2)
  - COUGH [None]
  - WHEEZING [None]
